FAERS Safety Report 7498342-9 (Version None)
Quarter: 2011Q2

REPORT INFORMATION
  Report Type: 
  Country: None (occurrence: None)
  Receive Date: 20110524
  Receipt Date: 20110110
  Transmission Date: 20111010
  Serious: Yes (Other)
  Sender: FDA-Public Use
  Company Number: US-BAYER-201033659NA

PATIENT
  Age: 37 Year
  Sex: Female
  Weight: 108.84 kg

DRUGS (12)
  1. METHYLPREDNISOLONE [Concomitant]
     Dosage: 4 MG, UNK
     Route: 048
     Dates: start: 20080711
  2. CITALOPRAM HYDROBROMIDE [Concomitant]
     Dosage: 10 MG, CONT
     Route: 048
     Dates: start: 20080811
  3. CELEXA [Concomitant]
     Indication: DEPRESSION
     Dosage: 20 MG, UNK
     Route: 048
     Dates: start: 20030101
  4. SULFACETAMIDE SODIUM [Concomitant]
     Dosage: UNK UNK, TID
     Route: 047
     Dates: start: 20061019
  5. METRONIDAZOLE [Concomitant]
     Dosage: 500 MG, UNK
     Route: 048
     Dates: start: 20091119
  6. MEDROL [Concomitant]
     Indication: INFLAMMATION
     Dosage: 4 MG, UNK
     Route: 048
  7. NEXIUM [Concomitant]
     Dosage: 40 MG, CONT
     Route: 048
     Dates: start: 20081115
  8. HYDROCODONE BITARTRATE AND ACETAMINOPHEN [Concomitant]
     Dosage: 500 UNK, UNK
     Route: 048
     Dates: start: 20081205
  9. NAPROXEN (ALEVE) [Concomitant]
  10. YASMIN [Suspect]
     Indication: CONTRACEPTION
     Dosage: UNK
     Dates: start: 20050101, end: 20080701
  11. DROSPIRENONE AND ETHINYL ESTRADIOL [Suspect]
     Indication: CONTRACEPTION
     Dosage: UNK
     Route: 048
     Dates: start: 20080701, end: 20090401
  12. ACETAMINOPHEN AND HYDROCODONE BITARTRATE [Concomitant]
     Indication: PAIN
     Dosage: 5 MG, UNK
     Route: 048

REACTIONS (6)
  - NAUSEA [None]
  - ABDOMINAL PAIN [None]
  - DYSPEPSIA [None]
  - GALLBLADDER DISORDER [None]
  - CHOLELITHIASIS [None]
  - PROCEDURAL PAIN [None]
